FAERS Safety Report 5815465-8 (Version None)
Quarter: 2008Q3

REPORT INFORMATION
  Report Type: 
  Country: None (occurrence: None)
  Receive Date: 20080718
  Receipt Date: 20080708
  Transmission Date: 20090109
  Serious: Yes (Other)
  Sender: FDA-Public Use
  Company Number: US-PFIZER INC-2008057295

PATIENT
  Sex: Female
  Weight: 70 kg

DRUGS (3)
  1. CHANTIX [Suspect]
     Indication: EMPHYSEMA
     Route: 048
  2. LEXAPRO [Concomitant]
  3. LIPITOR [Concomitant]
     Dosage: TEXT:20MG

REACTIONS (2)
  - DEPRESSION [None]
  - LUNG NEOPLASM MALIGNANT [None]
